FAERS Safety Report 9778658 (Version 4)
Quarter: 2014Q2

REPORT INFORMATION
  Report Type: Report from Study
  Country: AR (occurrence: AR)
  Receive Date: 20131223
  Receipt Date: 20140516
  Transmission Date: 20141212
  Serious: Yes (Hospitalization)
  Sender: FDA-Public Use
  Company Number: AR-ROCHE-1085168

PATIENT
  Age: 59 Year
  Sex: Female
  Weight: 88 kg

DRUGS (8)
  1. TRASTUZUMAB EMTANSINE [Suspect]
     Indication: BREAST CANCER
     Dosage: LAST DOSE PRIOR TO SAE: 18/JUN/2012, LAST DOSE TAKEN: 317 MG
     Route: 042
     Dates: start: 20120301
  2. AMLODIPINE [Concomitant]
     Indication: HYPERTENSION
     Route: 065
     Dates: start: 20030101
  3. ENALAPRIL [Concomitant]
     Indication: HYPERTENSION
     Route: 065
     Dates: start: 20030101
  4. ATENOLOL [Concomitant]
     Indication: HYPERTENSION
     Route: 065
     Dates: start: 20030101
  5. KETOROLAC [Concomitant]
     Indication: OSTEOARTHRITIS
     Route: 065
     Dates: start: 20090101
  6. OMEPRAZOL [Concomitant]
     Indication: PROPHYLAXIS
     Route: 065
     Dates: start: 20090101
  7. PLACEBO [Suspect]
     Indication: BREAST CANCER
     Route: 042
     Dates: start: 20120301
  8. PLACEBO [Suspect]
     Dosage: LAST DOSE PRIOR TO SAE: 18/JUN/2012
     Route: 042

REACTIONS (1)
  - Non-cardiac chest pain [Recovered/Resolved]
